FAERS Safety Report 25842851 (Version 2)
Quarter: 2025Q4

REPORT INFORMATION
  Report Type: Spontaneous
  Country: JP (occurrence: JP)
  Receive Date: 20250924
  Receipt Date: 20251005
  Transmission Date: 20260118
  Serious: Yes (Other)
  Sender: JOHNSON AND JOHNSON
  Company Number: JP-Eisai-EC-2025-197187

PATIENT
  Age: 68 Year
  Sex: Male

DRUGS (5)
  1. RABEPRAZOLE [Suspect]
     Active Substance: RABEPRAZOLE
     Indication: Product used for unknown indication
     Dosage: DOSE AND FREQUENCY UNKNOWN.
     Route: 048
  2. CANAGLIFLOZIN [Suspect]
     Active Substance: CANAGLIFLOZIN
     Indication: Diabetes mellitus
     Dosage: DOSE AND FREQUENCY UNKNOWN.
     Route: 065
  3. METFORMIN HYDROCHLORIDE [Suspect]
     Active Substance: METFORMIN HYDROCHLORIDE
     Indication: Product used for unknown indication
     Dosage: DOSE AND FREQUENCY UNKNOWN.
     Route: 065
  4. INSULIN DEGLUDEC\LIRAGLUTIDE [Suspect]
     Active Substance: INSULIN DEGLUDEC\LIRAGLUTIDE
     Indication: Product used for unknown indication
     Dosage: DOSE AND FREQUENCY UNKNOWN.
     Route: 065
  5. HERBALS [Suspect]
     Active Substance: HERBALS
     Indication: Product used for unknown indication
     Dosage: DOSE AND FREQUENCY UNKNOWN.
     Route: 065

REACTIONS (2)
  - Hypersensitivity pneumonitis [Unknown]
  - COVID-19 [Unknown]
